FAERS Safety Report 24046774 (Version 7)
Quarter: 2024Q4

REPORT INFORMATION
  Report Type: Report from Study
  Country: US (occurrence: US)
  Receive Date: 20240703
  Receipt Date: 20241015
  Transmission Date: 20250114
  Serious: Yes (Life-Threatening, Hospitalization)
  Sender: JOHNSON AND JOHNSON
  Company Number: US-JNJFOC-20240650604

PATIENT
  Age: 77 Year
  Sex: Female
  Weight: 46.308 kg

DRUGS (7)
  1. DARATUMUMAB [Suspect]
     Active Substance: DARATUMUMAB
     Indication: Plasma cell myeloma
     Dosage: 15 ML?DRUG RESTART AFTER INTERRUPTION ON 25-JUN-2024
     Route: 058
     Dates: start: 20240611, end: 20240618
  2. DARATUMUMAB [Suspect]
     Active Substance: DARATUMUMAB
     Route: 058
     Dates: start: 20240625
  3. DARATUMUMAB [Suspect]
     Active Substance: DARATUMUMAB
     Dosage: LOWER RIGHT ABDOMINAL
     Route: 058
     Dates: start: 20240702, end: 20240702
  4. IRON [Concomitant]
     Active Substance: IRON
     Indication: Iron deficiency
     Route: 042
     Dates: start: 20240617
  5. AMITRIPTYLINE [Concomitant]
     Active Substance: AMITRIPTYLINE
     Indication: Neuropathy peripheral
     Route: 048
     Dates: start: 20240620
  6. HUMAN RED BLOOD CELL [Concomitant]
     Active Substance: HUMAN RED BLOOD CELL
     Indication: Anaemia
     Dosage: 2 UNITS
     Route: 042
     Dates: start: 20240618, end: 20240618
  7. CLARITHROMYCIN [Concomitant]
     Active Substance: CLARITHROMYCIN
     Indication: Infection prophylaxis
     Route: 048
     Dates: start: 20240613, end: 20240617

REACTIONS (6)
  - Dehydration [Recovered/Resolved]
  - Nausea [Recovered/Resolved]
  - Diarrhoea [Recovered/Resolved]
  - Vomiting [Recovered/Resolved]
  - Hyponatraemia [Unknown]
  - Fatigue [Recovered/Resolved]

NARRATIVE: CASE EVENT DATE: 20240615
